FAERS Safety Report 5148675-6 (Version None)
Quarter: 2006Q4

REPORT INFORMATION
  Report Type: 
  Country: None (occurrence: None)
  Receive Date: 20061103
  Receipt Date: 20061023
  Transmission Date: 20070319
  Serious: Yes (Other)
  Sender: FDA-Public Use
  Company Number: GBWYE322924OCT06

PATIENT
  Sex: Female

DRUGS (3)
  1. PREMIQUE CYCLE (CONJUGATED ESTROGENS/MEDROXYPROGESTERONE ACETATE, TABL [Suspect]
     Dosage: 5 MG 1X PER 1 DAY
     Dates: end: 20050101
  2. PREMIQUE CYCLE (CONJUGATED ESTROGENS/MEDROXYPROGESTERONE ACETATE, TABL [Suspect]
     Dosage: 5 MG 1X PER 1 DAY
     Dates: start: 20060901
  3. UNSPECIFIED HORMONE REPLACEMENT THERAPY AGENT (UNSPECIFIED HORMONE REP [Suspect]
     Dates: start: 20050101

REACTIONS (1)
  - EPILEPSY [None]
